FAERS Safety Report 7987703-7 (Version None)
Quarter: 2011Q4

REPORT INFORMATION
  Report Type: 
  Country: None (occurrence: None)
  Receive Date: 20111216
  Receipt Date: 20110720
  Transmission Date: 20120403
  Serious: Yes (Hospitalization)
  Sender: FDA-Public Use
  Company Number: US-BRISTOL-MYERS SQUIBB COMPANY-15703580

PATIENT
  Age: 63 Year
  Sex: Female
  Weight: 63 kg

DRUGS (5)
  1. HYZAAR [Concomitant]
  2. REMERON [Concomitant]
  3. METFORMIN HCL [Concomitant]
  4. WELLBUTRIN [Concomitant]
  5. ABILIFY [Suspect]
     Indication: DEPRESSION
     Dates: start: 20110201

REACTIONS (9)
  - MEMORY IMPAIRMENT [None]
  - WEIGHT DECREASED [None]
  - DEPRESSION [None]
  - DIZZINESS [None]
  - NAUSEA [None]
  - VOMITING [None]
  - TRANSIENT ISCHAEMIC ATTACK [None]
  - VISION BLURRED [None]
  - BLOOD GLUCOSE INCREASED [None]
